FAERS Safety Report 9269446 (Version 1)
Quarter: 2013Q2

REPORT INFORMATION
  Report Type: Spontaneous
  Country: ES (occurrence: ES)
  Receive Date: 20130503
  Receipt Date: 20130503
  Transmission Date: 20140414
  Serious: Yes (Other)
  Sender: FDA-Public Use
  Company Number: ES-UCBSA-084633

PATIENT
  Age: 68 Year
  Sex: Female

DRUGS (2)
  1. NEUPRO [Suspect]
     Indication: NEUROPATHY PERIPHERAL
     Dosage: 2 MG/24 H
     Route: 062
     Dates: start: 20130326, end: 20130330
  2. PARACETAMOL [Concomitant]
     Dosage: UNKNOWN
     Route: 048
     Dates: start: 20130326

REACTIONS (10)
  - Eyelid oedema [Unknown]
  - Tremor [Unknown]
  - Erythema of eyelid [Unknown]
  - Vertigo [Unknown]
  - Pruritus [Unknown]
  - Dizziness [Unknown]
  - Headache [Unknown]
  - Rhinitis [Unknown]
  - Nausea [Unknown]
  - Conjunctivitis [Unknown]
